FAERS Safety Report 9281656 (Version 1)
Quarter: 2013Q2

REPORT INFORMATION
  Report Type: Spontaneous
  Country: NO (occurrence: NO)
  Receive Date: 20130509
  Receipt Date: 20130509
  Transmission Date: 20140414
  Serious: Yes (Life-Threatening, Hospitalization)
  Sender: FDA-Public Use
  Company Number: NO-MYLANLABS-2013S1009883

PATIENT
  Age: 83 Year
  Sex: Female

DRUGS (6)
  1. METOPROLOL [Suspect]
     Indication: HYPERTENSION
     Route: 048
     Dates: end: 20130411
  2. DONEPEZIL [Interacting]
     Indication: DEMENTIA ALZHEIMER^S TYPE
     Route: 048
     Dates: start: 20130304
  3. DONEPEZIL [Interacting]
     Indication: DEMENTIA ALZHEIMER^S TYPE
     Route: 048
     Dates: start: 20130402, end: 20130411
  4. ALENDRONIC ACID [Concomitant]
     Indication: OSTEOPOROSIS
  5. ENAP-HL                            /06436201/ [Concomitant]
     Indication: HYPERTENSION
     Dosage: 20 MG ENALAPRIL/12,5 MG HYDROCHLOROTHIAZIDE
  6. OVESTERIN [Concomitant]
     Indication: OSTEOPOROSIS

REACTIONS (10)
  - Drug interaction [Not Recovered/Not Resolved]
  - Bradycardia [Not Recovered/Not Resolved]
  - Dyspnoea [Not Recovered/Not Resolved]
  - Chest pain [Not Recovered/Not Resolved]
  - Nausea [Not Recovered/Not Resolved]
  - Atrioventricular block [Not Recovered/Not Resolved]
  - Malaise [Unknown]
  - Fatigue [Unknown]
  - Decreased appetite [Unknown]
  - Weight decreased [Unknown]
